FAERS Safety Report 24676679 (Version 1)
Quarter: 2024Q4

REPORT INFORMATION
  Report Type: Spontaneous
  Country: US (occurrence: US)
  Receive Date: 20241128
  Receipt Date: 20241128
  Transmission Date: 20250115
  Serious: No
  Sender: SANOFI AVENTIS
  Company Number: US-SA-2024SA347241

PATIENT
  Age: 27 Year
  Sex: Male

DRUGS (2)
  1. ALPROLIX [Suspect]
     Active Substance: EFTRENONACOG ALFA
     Indication: Factor IX deficiency
     Dosage: INFUSE 3900-4600 UNITS 1 TIME PER WEEK AND AS NEEDED FOR MINOR BLEEDS. MAJOR BLEEDS: INFUSE 7800-920
     Route: 042
     Dates: start: 202209
  2. ALPROLIX [Suspect]
     Active Substance: EFTRENONACOG ALFA
     Indication: Factor IX deficiency
     Dosage: INFUSE 3900-4600 UNITS 1 TIME PER WEEK AND AS NEEDED FOR MINOR BLEEDS. MAJOR BLEEDS: INFUSE 7800-920
     Route: 042
     Dates: start: 202209

REACTIONS (1)
  - Haemorrhage [Unknown]

NARRATIVE: CASE EVENT DATE: 20241117
